FAERS Safety Report 7491350-3 (Version None)
Quarter: 2011Q2

REPORT INFORMATION
  Report Type: 
  Country: None (occurrence: None)
  Receive Date: 20110518
  Receipt Date: 20110518
  Transmission Date: 20111010
  Serious: Yes (Life-Threatening)
  Sender: FDA-Public Use
  Company Number: None

PATIENT
  Age: 80 Year
  Sex: Male
  Weight: 68 kg

DRUGS (1)
  1. IBUTILIDE FUMARATE [Suspect]
     Indication: ATRIAL FIBRILLATION
     Dosage: 1MG ONCE IV BOLUS
     Route: 040
     Dates: start: 20110516, end: 20110516

REACTIONS (1)
  - VENTRICULAR TACHYCARDIA [None]
